FAERS Safety Report 8109981-6 (Version None)
Quarter: 2012Q1

REPORT INFORMATION
  Report Type: 
  Country: None (occurrence: None)
  Receive Date: 20120202
  Receipt Date: 20120123
  Transmission Date: 20120608
  Serious: No
  Sender: FDA-Public Use
  Company Number: US-AMGEN-USASP2012004713

PATIENT
  Sex: Female

DRUGS (4)
  1. AMANTADINE HCL [Concomitant]
     Dosage: FOR 3 MONTHS
     Dates: start: 20111001
  2. ENBREL [Suspect]
     Indication: PSORIASIS
     Dosage: 50 MG, 2 TIMES/WK
  3. ENBREL [Suspect]
     Indication: PSORIATIC ARTHROPATHY
  4. NEURONTIN [Concomitant]
     Dosage: FOR 6 MONTHS
     Dates: start: 20110701

REACTIONS (3)
  - DRUG INEFFECTIVE [None]
  - SCIATICA [None]
  - BACK PAIN [None]
